FAERS Safety Report 17770367 (Version 1)
Quarter: 2020Q2

REPORT INFORMATION
  Report Type: Spontaneous
  Country: US (occurrence: US)
  Receive Date: 20200512
  Receipt Date: 20200512
  Transmission Date: 20200714
  Serious: Yes (Hospitalization, Other)
  Sender: FDA-Public Use
  Company Number: None

PATIENT
  Age: 80 Year
  Sex: Male
  Weight: 100 kg

DRUGS (2)
  1. HYDROXYCHLOROQUINE [Suspect]
     Active Substance: HYDROXYCHLOROQUINE
     Indication: COVID-19
     Route: 048
     Dates: start: 20200326, end: 20200327
  2. AZITHROMYCIN 500MG DAILY [Suspect]
     Active Substance: AZITHROMYCIN
     Dates: start: 20200320, end: 20200326

REACTIONS (1)
  - Tachyarrhythmia [None]

NARRATIVE: CASE EVENT DATE: 20200326
